FAERS Safety Report 7302616-1 (Version None)
Quarter: 2011Q1

REPORT INFORMATION
  Report Type: 
  Country: None (occurrence: None)
  Receive Date: 20110218
  Receipt Date: 20110215
  Transmission Date: 20110831
  Serious: Yes (Other)
  Sender: FDA-Public Use
  Company Number: GR-ABBOTT-10P-066-0642370-00

PATIENT
  Age: 35 Year
  Sex: Male

DRUGS (3)
  1. VOLTAREN [Concomitant]
     Indication: ANKYLOSING SPONDYLITIS
     Dosage: ONCE DAILY UPON NEED
     Route: 048
     Dates: start: 20101210
  2. HUMIRA [Suspect]
     Indication: ANKYLOSING SPONDYLITIS
     Route: 058
     Dates: start: 20090731, end: 20100301
  3. ARCOXIA [Concomitant]
     Indication: ANKYLOSING SPONDYLITIS
     Dosage: ONCE DAILY UPON NEED
     Route: 048
     Dates: start: 20101210

REACTIONS (3)
  - SUBMANDIBULAR MASS [None]
  - EPSTEIN-BARR VIRUS INFECTION [None]
  - LYMPHADENOPATHY [None]
